FAERS Safety Report 6147605-8 (Version None)
Quarter: 2009Q2

REPORT INFORMATION
  Report Type: 
  Country: None (occurrence: None)
  Receive Date: 20090408
  Receipt Date: 20090403
  Transmission Date: 20091009
  Serious: Yes (Other)
  Sender: FDA-Public Use
  Company Number: US-BAYER-200910417BCC

PATIENT
  Age: 68 Year
  Sex: Female
  Weight: 247 kg

DRUGS (2)
  1. ASPIRIN [Suspect]
     Indication: ARTHRITIS
     Dosage: UNIT DOSE: 325 MG
     Dates: start: 19990101
  2. DILTIAZEM [Concomitant]
     Dosage: TOTAL DAILY DOSE: 360 MG

REACTIONS (5)
  - EYE HAEMORRHAGE [None]
  - HEADACHE [None]
  - MACULAR DEGENERATION [None]
  - VAGINAL HAEMORRHAGE [None]
  - VISUAL IMPAIRMENT [None]
